FAERS Safety Report 5305567-7 (Version None)
Quarter: 2007Q2

REPORT INFORMATION
  Report Type: 
  Country: None (occurrence: None)
  Receive Date: 20070424
  Receipt Date: 20070413
  Transmission Date: 20071010
  Serious: Yes (Other)
  Sender: FDA-Public Use
  Company Number: MX-AVENTIS-200711880EU

PATIENT
  Age: 36 Year
  Sex: Female

DRUGS (3)
  1. CLEXANE [Suspect]
     Route: 058
     Dates: start: 20070201, end: 20070412
  2. FOLIVITAL [Concomitant]
     Route: 048
     Dates: start: 20070201, end: 20070412
  3. PROGESTERONE [Concomitant]
     Route: 067
     Dates: start: 20070201, end: 20070412

REACTIONS (1)
  - ABORTION SPONTANEOUS [None]
